FAERS Safety Report 24424935 (Version 1)
Quarter: 2024Q4

REPORT INFORMATION
  Report Type: Spontaneous
  Country: US (occurrence: US)
  Receive Date: 20241010
  Receipt Date: 20241010
  Transmission Date: 20250115
  Serious: Yes (Hospitalization, Other)
  Sender: BAUSCH AND LOMB
  Company Number: US-002147023-NVSC2023US103512

PATIENT
  Age: 86 Year
  Sex: Female

DRUGS (2)
  1. XIIDRA [Suspect]
     Active Substance: LIFITEGRAST
     Indication: Dry eye
     Route: 065
  2. XIIDRA [Suspect]
     Active Substance: LIFITEGRAST
     Route: 065

REACTIONS (6)
  - Dehydration [Unknown]
  - Cataract [Unknown]
  - Atrial fibrillation [Unknown]
  - Dry eye [Unknown]
  - Eye infection [Unknown]
  - Product packaging quantity issue [Unknown]
